FAERS Safety Report 5391514-9 (Version None)
Quarter: 2007Q3

REPORT INFORMATION
  Report Type: 
  Country: None (occurrence: None)
  Receive Date: 20070719
  Receipt Date: 20070712
  Transmission Date: 20080115
  Serious: Yes (Hospitalization)
  Sender: FDA-Public Use
  Company Number: US-PFIZER INC-2007057067

PATIENT
  Sex: Male
  Weight: 158.8 kg

DRUGS (3)
  1. CELEBREX [Suspect]
     Indication: ARTHRALGIA
     Dates: start: 19980101, end: 20040801
  2. CELEBREX [Suspect]
  3. BEXTRA [Suspect]
     Indication: ARTHRALGIA
     Dates: start: 20020706, end: 20040812

REACTIONS (3)
  - CARDIAC DISORDER [None]
  - PULMONARY EMBOLISM [None]
  - THROMBOSIS [None]
